FAERS Safety Report 5303583-2 (Version None)
Quarter: 2007Q2

REPORT INFORMATION
  Report Type: 
  Country: None (occurrence: None)
  Receive Date: 20070420
  Receipt Date: 20070411
  Transmission Date: 20071010
  Serious: Yes (Hospitalization)
  Sender: FDA-Public Use
  Company Number: NO-PFIZER INC-2007028923

PATIENT
  Sex: Male

DRUGS (10)
  1. NORVASC [Suspect]
     Indication: HYPERTENSION
     Route: 048
  2. KREDEX [Suspect]
     Indication: HYPERTENSION
     Route: 048
  3. SELO-ZOK [Suspect]
     Indication: HYPERTENSION
     Route: 048
  4. ZANIDIP [Suspect]
     Indication: HYPERTENSION
     Route: 048
  5. COZAAR [Suspect]
     Indication: HYPERTENSION
     Route: 048
  6. ALDOMET [Suspect]
     Indication: HYPERTENSION
     Route: 048
  7. PHYSIOTENS [Suspect]
     Indication: HYPERTENSION
     Route: 048
  8. VIVATEC [Suspect]
     Indication: HYPERTENSION
     Route: 048
  9. EMCONCOR [Suspect]
     Indication: HYPERTENSION
     Route: 048
  10. FURIX [Suspect]
     Indication: HYPERTENSION
     Route: 048

REACTIONS (2)
  - COLITIS ULCERATIVE [None]
  - HEADACHE [None]
